FAERS Safety Report 7569054-8 (Version None)
Quarter: 2011Q2

REPORT INFORMATION
  Report Type: 
  Country: None (occurrence: None)
  Receive Date: 20110623
  Receipt Date: 20110613
  Transmission Date: 20111010
  Serious: Yes (Other)
  Sender: FDA-Public Use
  Company Number: US-SANOFI-AVENTIS-2011SA039101

PATIENT
  Age: 60 Year
  Sex: Female

DRUGS (3)
  1. LOVENOX [Suspect]
     Indication: THROMBOSIS PROPHYLAXIS
     Route: 065
     Dates: start: 20110607
  2. HUMALOG [Concomitant]
     Dosage: 20-22 UNITS AFTER BREAKFAST, LUNCH, AND DINNER.
  3. LANTUS [Suspect]
     Dosage: 34-40 UNITS BID
     Route: 058

REACTIONS (5)
  - BLOOD GLUCOSE INCREASED [None]
  - PAIN [None]
  - PRURITUS [None]
  - HERNIA REPAIR [None]
  - CHOLECYSTECTOMY [None]
